FAERS Safety Report 13019688 (Version 1)
Quarter: 2016Q4

REPORT INFORMATION
  Report Type: Spontaneous
  Country: JP (occurrence: JP)
  Receive Date: 20161212
  Receipt Date: 20161212
  Transmission Date: 20170207
  Serious: Yes (Hospitalization, Other)
  Sender: FDA-Public Use
  Company Number: JP-GILEAD-2016-0247473

PATIENT
  Age: 71 Year
  Sex: Female

DRUGS (1)
  1. HARVONI [Suspect]
     Active Substance: LEDIPASVIR\SOFOSBUVIR
     Indication: PRODUCT USED FOR UNKNOWN INDICATION
     Dosage: UNK
     Route: 048
     Dates: start: 20161110

REACTIONS (5)
  - Hepatic function abnormal [Unknown]
  - Drug dose omission [Unknown]
  - C-reactive protein increased [Unknown]
  - Hepatic encephalopathy [Unknown]
  - Constipation [Unknown]

NARRATIVE: CASE EVENT DATE: 2016
